FAERS Safety Report 16066906 (Version 1)
Quarter: 2019Q1

REPORT INFORMATION
  Report Type: Spontaneous
  Country: CA (occurrence: CA)
  Receive Date: 20190313
  Receipt Date: 20190313
  Transmission Date: 20190418
  Serious: Yes (Hospitalization)
  Sender: FDA-Public Use
  Company Number: CA-VERTEX PHARMACEUTICALS-2017-005161

PATIENT
  Age: 15 Year
  Sex: Female
  Weight: 47 kg

DRUGS (2)
  1. ORKAMBI [Suspect]
     Active Substance: IVACAFTOR\LUMACAFTOR
     Indication: CYSTIC FIBROSIS
     Dosage: 200/125 MG, BID (REGULAR ADULT DOSE)
     Route: 048
     Dates: start: 20170822
  2. SERTRALINE [Concomitant]
     Active Substance: SERTRALINE HYDROCHLORIDE
     Dosage: 100 MG

REACTIONS (4)
  - Forced expiratory volume decreased [Unknown]
  - Malaise [Not Recovered/Not Resolved]
  - Infective pulmonary exacerbation of cystic fibrosis [Unknown]
  - Hospitalisation [Unknown]

NARRATIVE: CASE EVENT DATE: 2017
